FAERS Safety Report 5818579-1 (Version None)
Quarter: 2008Q3

REPORT INFORMATION
  Report Type: 
  Country: None (occurrence: None)
  Receive Date: 20080717
  Receipt Date: 20080710
  Transmission Date: 20090109
  Serious: Yes (Other)
  Sender: FDA-Public Use
  Company Number: 163-21880-08070609

PATIENT
  Age: 66 Year
  Sex: Male

DRUGS (2)
  1. REVLIMID [Suspect]
     Indication: MULTIPLE MYELOMA
     Dosage: 15MG FROM DAY 1 TO DAY 20, THEN 5MG, DAILY, ORAL
     Route: 048
     Dates: start: 20080322
  2. REVLIMID [Suspect]

REACTIONS (1)
  - CONVULSION [None]
